FAERS Safety Report 7115988-8 (Version None)
Quarter: 2010Q4

REPORT INFORMATION
  Report Type: 
  Country: None (occurrence: None)
  Receive Date: 20101122
  Receipt Date: 20101115
  Transmission Date: 20110411
  Serious: Yes (Other)
  Sender: FDA-Public Use
  Company Number: US-AMGEN-USASP2010005169

PATIENT

DRUGS (2)
  1. ENBREL [Suspect]
     Indication: PSORIASIS
     Dates: start: 20080101, end: 20090201
  2. ENBREL [Suspect]
     Indication: OFF LABEL USE

REACTIONS (4)
  - ANXIETY [None]
  - DEPRESSION [None]
  - ECZEMA [None]
  - PSORIASIS [None]
